FAERS Safety Report 20964348 (Version 2)
Quarter: 2022Q3

REPORT INFORMATION
  Report Type: Spontaneous
  Country: LB (occurrence: LB)
  Receive Date: 20220615
  Receipt Date: 20220812
  Transmission Date: 20221027
  Serious: Yes (Death, Hospitalization, Other)
  Sender: FDA-Public Use
  Company Number: LB-PFIZER INC-2021245594

PATIENT
  Age: 59 Year
  Sex: Female

DRUGS (5)
  1. IBRANCE [Suspect]
     Active Substance: PALBOCICLIB
     Indication: Breast cancer metastatic
     Dosage: 125 MG, CYCLIC (1X/DAY FOR 21 DAYS EVERY 28 DAYS)
     Route: 048
     Dates: start: 201910
  2. IBRANCE [Suspect]
     Active Substance: PALBOCICLIB
     Indication: Aromatase inhibition therapy
  3. FEMARA [Concomitant]
     Active Substance: LETROZOLE
     Indication: Breast cancer metastatic
     Dosage: 2.5 MG, 1X/DAY
  4. FEMAPLEX [Concomitant]
     Indication: Breast cancer metastatic
     Dosage: 2.5 MG, 1X/DAY
  5. ZALDIAR [Concomitant]
     Active Substance: ACETAMINOPHEN\TRAMADOL HYDROCHLORIDE
     Dosage: UNK, 3X/DAY (ONCE/EVERY 8 HOURS)

REACTIONS (7)
  - Death [Fatal]
  - Cerebrovascular accident [Unknown]
  - Oxygen saturation decreased [Unknown]
  - Hypertension [Unknown]
  - Product supply issue [Unknown]
  - Product dose omission issue [Unknown]
  - Pain in extremity [Unknown]
